FAERS Safety Report 23694666 (Version 2)
Quarter: 2024Q2

REPORT INFORMATION
  Report Type: Spontaneous
  Country: DE (occurrence: DE)
  Receive Date: 20240402
  Receipt Date: 20240503
  Transmission Date: 20240716
  Serious: Yes (Hospitalization, Other)
  Sender: FDA-Public Use
  Company Number: DE-BRISTOL-MYERS SQUIBB COMPANY-2023-084053

PATIENT
  Age: 61 Year
  Sex: Male
  Weight: 55.5 kg

DRUGS (17)
  1. DOCETAXEL [Suspect]
     Active Substance: DOCETAXEL\DOCETAXEL ANHYDROUS
     Indication: Gastric cancer
     Dosage: 81 MILLIGRAM EVERY TWO WEEKS
     Route: 042
     Dates: start: 20230417, end: 20230608
  2. OXALIPLATIN [Suspect]
     Active Substance: OXALIPLATIN
     Indication: Gastric cancer
     Dosage: 137 MILLIGRAM EVERY TWO WEEKS
     Route: 042
     Dates: start: 20230417
  3. OPDIVO [Suspect]
     Active Substance: NIVOLUMAB
     Indication: Gastric cancer
     Dosage: 240 MILLIGRAM EVERY TWO WEEKS
     Route: 042
     Dates: start: 20230428, end: 20230608
  4. FLUOROURACIL [Suspect]
     Active Substance: FLUOROURACIL
     Indication: Gastric cancer
     Dosage: 4189 MILLIGRAM EVERY TWO WEEKS
     Route: 042
     Dates: start: 20230417, end: 20230608
  5. DIMENHYDRINATE [Concomitant]
     Active Substance: DIMENHYDRINATE
     Indication: Product used for unknown indication
     Dosage: 62 MILLIGRAM
     Route: 042
     Dates: start: 20230503
  6. CHOLECALCIFEROL [Concomitant]
     Active Substance: CHOLECALCIFEROL
     Indication: Prophylaxis
     Dosage: 1000 INTERNATIONAL UNIT, ONCE A DAY
     Route: 048
     Dates: start: 20230905
  7. SULFAMETHOXAZOLE\TRIMETHOPRIM [Concomitant]
     Active Substance: SULFAMETHOXAZOLE\TRIMETHOPRIM
     Indication: Prophylaxis
     Dosage: 960 MILLIGRAM, TWO TIMES A DAY
     Route: 048
     Dates: start: 20230905
  8. LEUCOVORIN [Concomitant]
     Active Substance: LEUCOVORIN\LEUCOVORIN CALCIUM
     Indication: Gastric cancer
     Dosage: 200 MILLIGRAM/SQ. METER
     Route: 042
     Dates: start: 20230417
  9. PALONOSETRON [Concomitant]
     Active Substance: PALONOSETRON
     Indication: Prophylaxis
     Dosage: UNK
     Route: 042
  10. Bepanthen [Concomitant]
     Indication: Product used for unknown indication
     Dosage: UNK
     Route: 062
     Dates: start: 20230526
  11. Fresubin energy [Concomitant]
     Indication: Product used for unknown indication
     Dosage: UNK
     Route: 048
     Dates: start: 20230323
  12. OLANZAPINE [Concomitant]
     Active Substance: OLANZAPINE
     Indication: Prophylaxis
     Dosage: 5 MILLIGRAM
     Route: 048
     Dates: start: 20230526
  13. DEXAMETHASONE [Concomitant]
     Active Substance: DEXAMETHASONE
     Indication: Product used for unknown indication
     Dosage: UNK
     Route: 042
  14. ONDANSETRON [Concomitant]
     Active Substance: ONDANSETRON
     Indication: Prophylaxis
     Dosage: 4 MILLIGRAM
     Route: 042
     Dates: start: 20230503, end: 20230503
  15. ONDANSETRON [Concomitant]
     Active Substance: ONDANSETRON
     Dosage: 4 MILLIGRAM
     Route: 048
     Dates: start: 20230516
  16. PREDNISOLONE [Concomitant]
     Active Substance: PREDNISOLONE
     Indication: Product used for unknown indication
     Dosage: UNK
     Route: 065
  17. AMOXICILLIN\CLAVULANATE POTASSIUM [Concomitant]
     Active Substance: AMOXICILLIN\CLAVULANATE POTASSIUM
     Indication: Product used for unknown indication
     Dosage: 875 MILLIGRAM 0.33 DAY
     Route: 048
     Dates: start: 20231004

REACTIONS (14)
  - COVID-19 [Recovered/Resolved]
  - Neutropenia [Unknown]
  - Immune-mediated hepatitis [Recovered/Resolved]
  - Polyneuropathy [Recovered/Resolved]
  - Nasal dryness [Unknown]
  - Asthenia [Unknown]
  - Anaemia [Unknown]
  - Productive cough [Unknown]
  - Liver function test increased [Unknown]
  - Haematoma [Recovering/Resolving]
  - Platelet count decreased [Recovered/Resolved]
  - Diarrhoea [Recovered/Resolved]
  - Fatigue [Recovered/Resolved]
  - Pyrexia [Recovered/Resolved]

NARRATIVE: CASE EVENT DATE: 20230429
